FAERS Safety Report 23830448 (Version 8)
Quarter: 2024Q4

REPORT INFORMATION
  Report Type: Spontaneous
  Country: GB (occurrence: GB)
  Receive Date: 20240508
  Receipt Date: 20241202
  Transmission Date: 20250115
  Serious: No
  Sender: PFIZER
  Company Number: GB-PFIZER INC-PV202400058788

PATIENT
  Age: 16 Year
  Sex: Male

DRUGS (1)
  1. GENOTROPIN [Suspect]
     Active Substance: SOMATROPIN
     Indication: Turner^s syndrome
     Dosage: 1.4 MG, 1X/DAY
     Route: 058

REACTIONS (6)
  - Device defective [Unknown]
  - Product reconstitution quality issue [Unknown]
  - Product deposit [Unknown]
  - Device issue [Unknown]
  - Device breakage [Unknown]
  - Device mechanical issue [Unknown]
